FAERS Safety Report 25848666 (Version 1)
Quarter: 2025Q3

REPORT INFORMATION
  Report Type: Spontaneous
  Country: EU (occurrence: EU)
  Receive Date: 20250925
  Receipt Date: 20250925
  Transmission Date: 20251020
  Serious: Yes (Other)
  Sender: ALEXION PHARMACEUTICALS
  Company Number: EU-AstraZeneca-CH-00955677A

PATIENT
  Sex: Male
  Weight: 90 kg

DRUGS (2)
  1. DAPAGLIFLOZIN [Suspect]
     Active Substance: DAPAGLIFLOZIN
  2. EPLERENONE [Suspect]
     Active Substance: EPLERENONE
     Route: 065

REACTIONS (1)
  - Chronic kidney disease [Unknown]
